FAERS Safety Report 4892659-X (Version None)
Quarter: 2006Q1

REPORT INFORMATION
  Report Type: 
  Country: None (occurrence: None)
  Receive Date: 20060126
  Receipt Date: 20060116
  Transmission Date: 20060701
  Serious: Yes (Life-Threatening, Hospitalization)
  Sender: FDA-Public Use
  Company Number: FR-BRISTOL-MYERS SQUIBB COMPANY-13249768

PATIENT
  Age: 54 Year
  Sex: Male

DRUGS (4)
  1. ELISOR TABS [Suspect]
     Route: 048
  2. MOPRAL [Suspect]
  3. TERCIAN [Suspect]
  4. HEPT-A-MYL [Suspect]

REACTIONS (4)
  - AORTIC ANEURYSM [None]
  - COAGULOPATHY [None]
  - FIBRINOLYSIS INCREASED [None]
  - HAEMORRHAGE [None]
